FAERS Safety Report 21758006 (Version 2)
Quarter: 2023Q1

REPORT INFORMATION
  Report Type: Spontaneous
  Country: US (occurrence: US)
  Receive Date: 20221221
  Receipt Date: 20230211
  Transmission Date: 20230418
  Serious: Yes (Other)
  Sender: FDA-Public Use
  Company Number: US-CELLTRION INC.-2022US021176

PATIENT

DRUGS (2)
  1. INFLECTRA [Suspect]
     Active Substance: INFLIXIMAB-DYYB
     Indication: Rheumatoid arthritis
     Dosage: 207 MG CYCLIC (207 MG, CYCLIC (207MG IV ON WEEK 0, 2, 4 THEN Q 8 WEEKS)
     Route: 042
     Dates: start: 20221129, end: 20221129
  2. INFLECTRA [Suspect]
     Active Substance: INFLIXIMAB-DYYB
     Dosage: 207 MG CYCLIC (207 MG, CYCLIC (207MG IV ON WEEK 0, 2, 4 THEN Q 8 WEEKS)
     Route: 042
     Dates: start: 20221213, end: 20221213

REACTIONS (3)
  - Throat irritation [Recovered/Resolved]
  - Urticaria [Recovered/Resolved]
  - Off label use [Unknown]

NARRATIVE: CASE EVENT DATE: 20221213
